FAERS Safety Report 13075808 (Version 1)
Quarter: 2016Q4

REPORT INFORMATION
  Report Type: Spontaneous
  Country: US (occurrence: US)
  Receive Date: 20161229
  Receipt Date: 20161229
  Transmission Date: 20170207
  Serious: Yes (Disabling)
  Sender: FDA-Public Use
  Company Number: None

PATIENT
  Sex: Female
  Weight: 82.35 kg

DRUGS (12)
  1. LEVAQUIN [Suspect]
     Active Substance: LEVOFLOXACIN
     Indication: INFECTION
     Route: 048
  2. DEXILANT [Concomitant]
     Active Substance: DEXLANSOPRAZOLE
  3. HCTZ [Concomitant]
     Active Substance: HYDROCHLOROTHIAZIDE
  4. CLONIDINE. [Concomitant]
     Active Substance: CLONIDINE
  5. ESTRADIOL. [Concomitant]
     Active Substance: ESTRADIOL
  6. COMPOUNDED PROGESTERONE [Concomitant]
  7. AVALOX [Suspect]
     Active Substance: MOXIFLOXACIN HYDROCHLORIDE
     Indication: INFECTION
     Route: 048
  8. SPIRONOLACTONE. [Concomitant]
     Active Substance: SPIRONOLACTONE
  9. NASONEX [Concomitant]
     Active Substance: MOMETASONE FUROATE
  10. TYLENOL EXTRA STRENGTH [Concomitant]
     Active Substance: ACETAMINOPHEN
  11. COZAAR [Concomitant]
     Active Substance: LOSARTAN POTASSIUM
  12. MONTELUKAST SODIUM. [Concomitant]
     Active Substance: MONTELUKAST SODIUM

REACTIONS (5)
  - Neuropathy peripheral [None]
  - Feeling abnormal [None]
  - Fatigue [None]
  - Activities of daily living impaired [None]
  - Dysgraphia [None]
